FAERS Safety Report 8185179 (Version 4)
Quarter: 2019Q2

REPORT INFORMATION
  Report Type: Spontaneous
  Country: US (occurrence: US)
  Receive Date: 20111018
  Receipt Date: 20190503
  Transmission Date: 20190711
  Serious: No
  Sender: FDA-Public Use
  Company Number: US-ASTRAZENECA-2011SE35286

PATIENT
  Age: 42 Year
  Sex: Male
  Weight: 95.3 kg

DRUGS (3)
  1. SYMBICORT [Suspect]
     Active Substance: BUDESONIDE\FORMOTEROL FUMARATE DIHYDRATE
     Indication: ASTHMA
     Dosage: 160/4.5 MCG, 1 PUFF TWICE DAILY
     Route: 055
     Dates: start: 2008
  2. VENTOLIN [Concomitant]
     Active Substance: ALBUTEROL SULFATE
  3. SYMBICORT [Suspect]
     Active Substance: BUDESONIDE\FORMOTEROL FUMARATE DIHYDRATE
     Indication: CHRONIC OBSTRUCTIVE PULMONARY DISEASE
     Dosage: 160/4.5 MCG, 1 PUFF TWICE DAILY
     Route: 055
     Dates: start: 2008

REACTIONS (7)
  - Product dose omission [Unknown]
  - Device issue [Unknown]
  - Malaise [Unknown]
  - Dyspnoea [Unknown]
  - Asthma [Unknown]
  - Off label use [Unknown]
  - Therapy cessation [Unknown]
